FAERS Safety Report 8846972 (Version 6)
Quarter: 2013Q2

REPORT INFORMATION
  Report Type: Report from Study
  Country: US (occurrence: US)
  Receive Date: 20121018
  Receipt Date: 20130509
  Transmission Date: 20140414
  Serious: Yes (Other)
  Sender: FDA-Public Use
  Company Number: US-US-EMD SERONO, INC.-7167730

PATIENT
  Sex: Female
  Weight: 64 kg

DRUGS (6)
  1. REBIF [Suspect]
     Indication: MULTIPLE SCLEROSIS
     Route: 058
     Dates: start: 20100419
  2. CYMBALTA [Concomitant]
     Indication: PAIN
  3. CYMBALTA [Concomitant]
     Indication: STRESS
  4. AMLODIPINE [Concomitant]
     Indication: HYPERTENSION
  5. BENAZEPRIL [Concomitant]
     Indication: HYPERTENSION
  6. BACLOFEN [Concomitant]
     Indication: MULTIPLE SCLEROSIS

REACTIONS (13)
  - Mixed connective tissue disease [Unknown]
  - Parathyroid tumour benign [Recovered/Resolved]
  - Ovarian cyst [Not Recovered/Not Resolved]
  - Protein urine present [Not Recovered/Not Resolved]
  - Balance disorder [Not Recovered/Not Resolved]
  - Dizziness [Not Recovered/Not Resolved]
  - Fall [Unknown]
  - Contusion [Unknown]
  - Insomnia [Unknown]
  - Influenza [Not Recovered/Not Resolved]
  - Pollakiuria [Not Recovered/Not Resolved]
  - Neck pain [Unknown]
  - Injection site reaction [Recovering/Resolving]
